FAERS Safety Report 6233966-8 (Version None)
Quarter: 2009Q2

REPORT INFORMATION
  Report Type: 
  Country: None (occurrence: None)
  Receive Date: 20090616
  Receipt Date: 20090616
  Transmission Date: 20091009
  Serious: Yes (Other)
  Sender: FDA-Public Use
  Company Number: None

PATIENT
  Sex: Female
  Weight: 68.9467 kg

DRUGS (2)
  1. SERTRALINE [Suspect]
     Indication: ANXIETY DISORDER
     Dosage: 50MG 1 DAILY PO
     Route: 048
     Dates: start: 20090301, end: 20090614
  2. SERTRALINE [Suspect]
     Indication: DEPRESSION
     Dosage: 50MG 1 DAILY PO
     Route: 048
     Dates: start: 20090301, end: 20090614

REACTIONS (11)
  - ANXIETY [None]
  - CONFUSIONAL STATE [None]
  - DRUG DEPENDENCE [None]
  - DRUG INEFFECTIVE [None]
  - FEAR [None]
  - HYPERHIDROSIS [None]
  - IMPAIRED DRIVING ABILITY [None]
  - PALPITATIONS [None]
  - SYNCOPE [None]
  - VISION BLURRED [None]
  - VOMITING [None]
